FAERS Safety Report 21929746 (Version 3)
Quarter: 2023Q2

REPORT INFORMATION
  Report Type: Report from Study
  Country: US (occurrence: US)
  Receive Date: 20230131
  Receipt Date: 20230406
  Transmission Date: 20230722
  Serious: No
  Sender: FDA-Public Use
  Company Number: US-GBT-019566

PATIENT
  Sex: Female

DRUGS (8)
  1. OXBRYTA [Suspect]
     Active Substance: VOXELOTOR
     Indication: Haemoglobin
     Route: 048
     Dates: start: 20200321, end: 20221124
  2. ASPIRIN [Concomitant]
     Active Substance: ASPIRIN
  3. OXYCODONE [Concomitant]
     Active Substance: OXYCODONE
     Indication: Pain
     Route: 048
     Dates: start: 2019
  4. IBUPROFEN [Concomitant]
     Active Substance: IBUPROFEN
     Dosage: PRN
     Route: 048
     Dates: start: 20210202
  5. VALACYCLOVIR [Concomitant]
     Active Substance: VALACYCLOVIR HYDROCHLORIDE
     Route: 048
     Dates: start: 20210820
  6. TOBRADEX [Concomitant]
     Active Substance: DEXAMETHASONE\TOBRAMYCIN
     Dosage: 2 DROPS
     Route: 047
     Dates: start: 2022, end: 2022
  7. ZAFEMY [Concomitant]
     Active Substance: ETHINYL ESTRADIOL\NORELGESTROMIN
     Indication: Contraception
     Dosage: 1 PATCH QWK
     Dates: start: 202112
  8. LINZESS [Concomitant]
     Active Substance: LINACLOTIDE
     Dosage: 145 MCG PRN
     Route: 048
     Dates: start: 202201

REACTIONS (1)
  - Exposure during pregnancy [Unknown]
